FAERS Safety Report 25984102 (Version 1)
Quarter: 2025Q4

REPORT INFORMATION
  Report Type: Spontaneous
  Country: EU (occurrence: EU)
  Receive Date: 20251031
  Receipt Date: 20251031
  Transmission Date: 20260117
  Serious: Yes (Hospitalization)
  Sender: MERCK SHARP & DOHME LLC
  Company Number: None

PATIENT
  Age: 59 Year
  Sex: Male
  Weight: 104 kg

DRUGS (3)
  1. JANUMET [Suspect]
     Active Substance: METFORMIN HYDROCHLORIDE\SITAGLIPTIN PHOSPHATE
     Indication: Toxicity to various agents
     Dosage: FREQ: TOTAL
     Route: 048
     Dates: start: 20250216, end: 20250216
  2. VALSARTAN [Concomitant]
     Active Substance: VALSARTAN
  3. METFORMIN [Suspect]
     Active Substance: METFORMIN HYDROCHLORIDE
     Indication: Toxicity to various agents
     Dosage: FREQ: TOTAL
     Route: 048
     Dates: start: 20250216, end: 20250216

REACTIONS (2)
  - Poisoning deliberate [Recovered/Resolved]
  - Lactic acidosis [Recovered/Resolved]

NARRATIVE: CASE EVENT DATE: 20250216
